FAERS Safety Report 9401926 (Version 1)
Quarter: 2013Q3

REPORT INFORMATION
  Report Type: Spontaneous
  Country: US (occurrence: US)
  Receive Date: 20130716
  Receipt Date: 20130716
  Transmission Date: 20140515
  Serious: No
  Sender: FDA-Public Use
  Company Number: US-PFIZER INC-2013204071

PATIENT
  Age: 83 Year
  Sex: Male

DRUGS (3)
  1. SUTENT [Suspect]
     Indication: METASTATIC RENAL CELL CARCINOMA
     Dosage: 50 MG, 1X/DAY
  2. SUTENT [Suspect]
     Indication: RENAL MASS
  3. SUTENT [Suspect]
     Indication: METASTASES TO BONE

REACTIONS (7)
  - Ageusia [Unknown]
  - Weight decreased [Unknown]
  - Hyperaesthesia [Unknown]
  - Frequent bowel movements [Unknown]
  - Proctalgia [Unknown]
  - Platelet count decreased [Unknown]
  - White blood cell count decreased [Unknown]
